FAERS Safety Report 13759492 (Version 1)
Quarter: 2017Q3

REPORT INFORMATION
  Report Type: Spontaneous
  Country: US (occurrence: US)
  Receive Date: 20170717
  Receipt Date: 20170717
  Transmission Date: 20171127
  Serious: No
  Sender: FDA-Public Use
  Company Number: US-IPSEN BIOPHARMACEUTICALS, INC.-2012-1314

PATIENT
  Sex: Female

DRUGS (2)
  1. PERLANE [Suspect]
     Active Substance: HYALURONIC ACID
     Indication: PRODUCT USED FOR UNKNOWN INDICATION
     Route: 051
     Dates: start: 20120303, end: 20120303
  2. DYSPORT [Suspect]
     Active Substance: ABOBOTULINUMTOXINA
     Indication: SKIN COSMETIC PROCEDURE
     Dosage: NOT REPORTED
     Route: 051
     Dates: start: 20120303, end: 20120303

REACTIONS (1)
  - Periorbital oedema [Not Recovered/Not Resolved]

NARRATIVE: CASE EVENT DATE: 20120311
